APPROVED DRUG PRODUCT: ISOPTO ATROPINE
Active Ingredient: ATROPINE SULFATE
Strength: 1%
Dosage Form/Route: SOLUTION/DROPS;OPHTHALMIC
Application: N208151 | Product #001 | TE Code: AT2
Applicant: ALCON LABORATORIES INC
Approved: Dec 1, 2016 | RLD: Yes | RS: Yes | Type: RX